FAERS Safety Report 5188764-3 (Version None)
Quarter: 2006Q4

REPORT INFORMATION
  Report Type: 
  Country: None (occurrence: None)
  Receive Date: 20061221
  Receipt Date: 20061211
  Transmission Date: 20070319
  Serious: Yes (Hospitalization, Other)
  Sender: FDA-Public Use
  Company Number: GB-ABBOTT-06P-167-0353222-00

PATIENT
  Age: 27 Year
  Sex: Female

DRUGS (4)
  1. ERYTHROMYCIN BASE [Suspect]
     Indication: DRUG USE FOR UNKNOWN INDICATION
  2. BETAMETHASONE [Suspect]
     Indication: DRUG USE FOR UNKNOWN INDICATION
  3. CEFUROXIME SODIUM [Suspect]
     Indication: DRUG USE FOR UNKNOWN INDICATION
  4. METRONIDAZOLE [Suspect]
     Indication: DRUG USE FOR UNKNOWN INDICATION

REACTIONS (2)
  - AMNIOTIC FLUID VOLUME DECREASED [None]
  - INTRA-UTERINE DEATH [None]
